FAERS Safety Report 10272554 (Version 1)
Quarter: 2014Q2

REPORT INFORMATION
  Report Type: Spontaneous
  Country: US (occurrence: None)
  Receive Date: 20140627
  Receipt Date: 20140627
  Transmission Date: 20141212
  Serious: Yes (Other)
  Sender: FDA-Public Use
  Company Number: DEP_02154_2014

PATIENT
  Age: 75 Year
  Sex: Female
  Weight: 68.49 kg

DRUGS (9)
  1. GRALISE [Suspect]
     Indication: NEUROPATHY PERIPHERAL
     Dosage: TITRATED UP TO 900 MG ORAL
     Route: 048
     Dates: start: 20140612
  2. GRALISE [Suspect]
     Indication: OFF LABEL USE
     Dosage: TITRATED UP TO 900 MG ORAL
     Route: 048
     Dates: start: 20140612
  3. FELODIPINE [Concomitant]
  4. MICARDIS HCT [Concomitant]
  5. ENABLEX [Concomitant]
  6. CHOLESTYRAMINE [Concomitant]
  7. KLONOPIN [Concomitant]
  8. FLECTOR [Concomitant]
  9. VOLTAREN [Concomitant]

REACTIONS (9)
  - Dizziness [None]
  - Gait disturbance [None]
  - Headache [None]
  - Condition aggravated [None]
  - Dyspepsia [None]
  - Feeling abnormal [None]
  - Memory impairment [None]
  - Activities of daily living impaired [None]
  - Impaired driving ability [None]
